FAERS Safety Report 6902947-0 (Version None)
Quarter: 2010Q3

REPORT INFORMATION
  Report Type: 
  Country: None (occurrence: None)
  Receive Date: 20100803
  Receipt Date: 20080605
  Transmission Date: 20110219
  Serious: No
  Sender: FDA-Public Use
  Company Number: US-PFIZER INC-2008048784

PATIENT
  Sex: Female
  Weight: 56.8 kg

DRUGS (6)
  1. LYRICA [Suspect]
     Indication: PANIC ATTACK
     Route: 048
     Dates: start: 20080522
  2. LYRICA [Suspect]
     Indication: ANXIETY
  3. SEROQUEL [Concomitant]
  4. CELEXA [Concomitant]
  5. URECHOLINE [Concomitant]
  6. KLONOPIN [Concomitant]

REACTIONS (1)
  - TREMOR [None]
